FAERS Safety Report 9426378 (Version 1)
Quarter: 2013Q3

REPORT INFORMATION
  Report Type: Spontaneous
  Country: US (occurrence: US)
  Receive Date: 20130730
  Receipt Date: 20130730
  Transmission Date: 20140515
  Serious: Yes (Other)
  Sender: FDA-Public Use
  Company Number: US-AMGEN-USASP2013052337

PATIENT
  Age: 60 Year
  Sex: Female

DRUGS (9)
  1. SENSIPAR [Suspect]
     Indication: HYPERPARATHYROIDISM PRIMARY
     Dosage: UNK
     Route: 065
     Dates: start: 20130704, end: 20130722
  2. COZAAR [Concomitant]
  3. METOPROLOL [Concomitant]
  4. LANTUS [Concomitant]
  5. HUMULIN R [Concomitant]
  6. LEVOTHYROXINE [Concomitant]
  7. PLAVIX [Concomitant]
  8. ASPIRIN [Concomitant]
  9. LASIX                              /00032601/ [Concomitant]

REACTIONS (3)
  - Dyspnoea at rest [Not Recovered/Not Resolved]
  - Blood pressure increased [Unknown]
  - Abasia [Unknown]
